FAERS Safety Report 7064804-1 (Version None)
Quarter: 2010Q4

REPORT INFORMATION
  Report Type: 
  Country: None (occurrence: None)
  Receive Date: 20101021
  Receipt Date: 20101021
  Transmission Date: 20110411
  Serious: Yes (Other)
  Sender: FDA-Public Use
  Company Number: None

PATIENT
  Sex: Female
  Weight: 68.0396 kg

DRUGS (1)
  1. DESYREL [Suspect]
     Dosage: 50 MG 1-2X A WEEK ORAL
     Route: 048
     Dates: start: 20080201, end: 20100501

REACTIONS (3)
  - DRUG ADMINISTRATION ERROR [None]
  - GENITAL DISORDER FEMALE [None]
  - INSOMNIA [None]
